FAERS Safety Report 5923504-9 (Version None)
Quarter: 2008Q4

REPORT INFORMATION
  Report Type: 
  Country: None (occurrence: None)
  Receive Date: 20081015
  Receipt Date: 20081006
  Transmission Date: 20090506
  Serious: Yes (Other)
  Sender: FDA-Public Use
  Company Number: 2008BI020527

PATIENT
  Age: 51 Year
  Sex: Female

DRUGS (3)
  1. TYSABRI [Suspect]
     Indication: MULTIPLE SCLEROSIS
     Dosage: 300 MG; QM; IV
     Route: 042
     Dates: start: 20080328
  2. AVONEX [Concomitant]
  3. REBIF [Concomitant]

REACTIONS (3)
  - ARTHROPOD BITE [None]
  - ENCEPHALITIS [None]
  - PYREXIA [None]
